FAERS Safety Report 5057176-5 (Version None)
Quarter: 2006Q3

REPORT INFORMATION
  Report Type: 
  Country: None (occurrence: None)
  Receive Date: 20060721
  Receipt Date: 20050527
  Transmission Date: 20061208
  Serious: No
  Sender: FDA-Public Use
  Company Number: US-GLAXOSMITHKLINE-A0560401A

PATIENT
  Age: 58 Year
  Sex: Female

DRUGS (5)
  1. AVANDIA [Suspect]
     Dosage: 4MG PER DAY
     Route: 048
     Dates: start: 20050426
  2. METFORMIN [Suspect]
     Dosage: 1000MG TWICE PER DAY
     Route: 048
     Dates: start: 20050426
  3. LIPITOR [Concomitant]
  4. ENALAPRIL MALEATE [Concomitant]
  5. STARLIX [Concomitant]

REACTIONS (2)
  - ASTHENIA [None]
  - DEPRESSION [None]
